FAERS Safety Report 7801492-8 (Version None)
Quarter: 2011Q4

REPORT INFORMATION
  Report Type: 
  Country: None (occurrence: None)
  Receive Date: 20111007
  Receipt Date: 20110927
  Transmission Date: 20120403
  Serious: Yes (Hospitalization)
  Sender: FDA-Public Use
  Company Number: US-JNJFOC-20110703473

PATIENT
  Sex: Male
  Weight: 70.31 kg

DRUGS (7)
  1. VITAMIN D [Concomitant]
     Indication: VITAMIN SUPPLEMENTATION
     Route: 048
  2. FOLIC ACID [Concomitant]
     Indication: VITAMIN SUPPLEMENTATION
     Route: 048
  3. TRAMADOL HCL [Concomitant]
     Indication: PAIN
     Route: 048
  4. SIMVASTATIN [Concomitant]
     Indication: BLOOD CHOLESTEROL INCREASED
     Route: 048
  5. IRON [Concomitant]
     Indication: ANAEMIA
     Route: 048
  6. ANTIBIOTIC NOS [Suspect]
     Indication: PNEUMONIA
     Route: 048
     Dates: start: 20110601, end: 20110601
  7. REMICADE [Suspect]
     Indication: RHEUMATOID ARTHRITIS
     Route: 042
     Dates: start: 20091001

REACTIONS (8)
  - PNEUMONIA [None]
  - VENTRICULAR EXTRASYSTOLES [None]
  - WEIGHT DECREASED [None]
  - RASH [None]
  - LUNG DISORDER [None]
  - STOMATITIS [None]
  - EATING DISORDER [None]
  - CARDIAC DISORDER [None]
